FAERS Safety Report 6402981-3 (Version None)
Quarter: 2009Q4

REPORT INFORMATION
  Report Type: 
  Country: None (occurrence: None)
  Receive Date: 20091016
  Receipt Date: 20091008
  Transmission Date: 20100525
  Serious: Yes (Hospitalization)
  Sender: FDA-Public Use
  Company Number: US-ELI_LILLY_AND_COMPANY-US200910001827

PATIENT
  Sex: Female
  Weight: 126.98 kg

DRUGS (16)
  1. BYETTA [Suspect]
     Indication: TYPE 2 DIABETES MELLITUS
     Dosage: 5 UG, 2/D
     Route: 058
     Dates: start: 20090401, end: 20090701
  2. BYETTA [Suspect]
     Dosage: 10 UG, 2/D
     Route: 058
     Dates: start: 20090701, end: 20091005
  3. BYETTA [Suspect]
     Dosage: 10 UG, 2/D
     Route: 058
     Dates: start: 20091008
  4. METFORMIN HYDROCHLORIDE [Concomitant]
     Indication: TYPE 2 DIABETES MELLITUS
     Dosage: 500 MG, EACH EVENING
     Dates: start: 20091005
  5. GLIPIZIDE [Concomitant]
     Indication: TYPE 2 DIABETES MELLITUS
     Dosage: 10 MG, DAILY (1/D)
     Dates: start: 20091005
  6. LIPITOR [Concomitant]
     Indication: BLOOD CHOLESTEROL
     Dosage: 20 MG, DAILY (1/D)
  7. NEXIUM [Concomitant]
     Dosage: 40 MG, DAILY (1/D)
  8. XANAX [Concomitant]
     Indication: ANXIETY
     Dosage: 0.5 MG, 2/D
  9. PLAVIX [Concomitant]
     Indication: CARDIAC DISORDER
     Dosage: 75 MG, DAILY (1/D)
  10. COUMADIN [Concomitant]
     Indication: CARDIAC DISORDER
     Dosage: 10 MG, 3/W
  11. COUMADIN [Concomitant]
     Dosage: 5 MG, 3/W
  12. METOPROLOL [Concomitant]
     Indication: CARDIAC DISORDER
     Dosage: 50 MG, 2/D
  13. DIGOXIN [Concomitant]
     Indication: CARDIAC DISORDER
     Dosage: 0.125 MG, DAILY (1/D)
  14. LEVOTHYROXINE SODIUM [Concomitant]
     Dosage: UNK, UNKNOWN
  15. ISORBID [Concomitant]
     Dosage: UNK, UNKNOWN
  16. LISINOPRIL [Concomitant]
     Dosage: UNK, UNKNOWN

REACTIONS (13)
  - ABDOMINAL HERNIA [None]
  - DEPRESSED LEVEL OF CONSCIOUSNESS [None]
  - DIZZINESS [None]
  - DRUG DOSE OMISSION [None]
  - GASTROOESOPHAGEAL REFLUX DISEASE [None]
  - HYPERHIDROSIS [None]
  - MALAISE [None]
  - NAUSEA [None]
  - OFF LABEL USE [None]
  - RETCHING [None]
  - SPEECH DISORDER [None]
  - TREMOR [None]
  - VOMITING [None]
